FAERS Safety Report 18378482 (Version 1)
Quarter: 2020Q4

REPORT INFORMATION
  Report Type: Spontaneous
  Country: US (occurrence: US)
  Receive Date: 20201013
  Receipt Date: 20201013
  Transmission Date: 20210114
  Serious: No
  Sender: FDA-Public Use
  Company Number: US-AMNEAL PHARMACEUTICALS-2020-AMRX-02722

PATIENT
  Age: 18 Year
  Sex: Female

DRUGS (3)
  1. ISOTRETINOIN. [Suspect]
     Active Substance: ISOTRETINOIN
     Indication: ACNE
     Dosage: 1 CAPSULES, QD
     Route: 048
     Dates: start: 20200526, end: 2020
  2. ISOTRETINOIN. [Suspect]
     Active Substance: ISOTRETINOIN
     Dosage: 1 CAPSULES, DAILY
     Route: 048
     Dates: start: 20200729, end: 20200901
  3. ISOTRETINOIN. [Suspect]
     Active Substance: ISOTRETINOIN
     Dosage: 1 CAPSULES, QD ALTERNATING WITH 1 CAPSULE BID
     Route: 048
     Dates: start: 20200629, end: 20200729

REACTIONS (2)
  - Blood triglycerides increased [Unknown]
  - Epistaxis [Unknown]

NARRATIVE: CASE EVENT DATE: 2020
